FAERS Safety Report 5337080-5 (Version None)
Quarter: 2007Q2

REPORT INFORMATION
  Report Type: 
  Country: None (occurrence: None)
  Receive Date: 20070523
  Receipt Date: 20070515
  Transmission Date: 20071010
  Serious: Yes (Hospitalization)
  Sender: FDA-Public Use
  Company Number: 2007RL000130

PATIENT
  Age: 82 Year
  Sex: Female

DRUGS (7)
  1. PROPAFENONE HCL [Suspect]
     Indication: ATRIAL FIBRILLATION
     Dosage: SEE IMAGE
     Route: 048
     Dates: start: 20070113, end: 20070116
  2. PROPAFENONE HCL [Suspect]
     Indication: ATRIAL FIBRILLATION
     Dosage: SEE IMAGE
     Route: 048
     Dates: start: 20070117, end: 20070119
  3. RAMIPRIL [Concomitant]
  4. TORASEMIDE SODIUM [Concomitant]
  5. THIAMAZOLE [Concomitant]
  6. ACETYLSALICYLIC ACID SRT [Concomitant]
  7. METILDIGOXIN [Concomitant]

REACTIONS (11)
  - ABDOMINAL PAIN UPPER [None]
  - BALANCE DISORDER [None]
  - COMMUNICATION DISORDER [None]
  - COORDINATION ABNORMAL [None]
  - DRY MOUTH [None]
  - GAIT DISTURBANCE [None]
  - MOTOR DYSFUNCTION [None]
  - NAUSEA [None]
  - SPEECH DISORDER [None]
  - TREMOR [None]
  - VOMITING [None]
